FAERS Safety Report 23379852 (Version 1)
Quarter: 2024Q1

REPORT INFORMATION
  Report Type: Spontaneous
  Country: US (occurrence: US)
  Receive Date: 20240108
  Receipt Date: 20240108
  Transmission Date: 20240410
  Serious: No
  Sender: FDA-Public Use
  Company Number: US-TAKEDA-2024TUS001835

PATIENT
  Sex: Male
  Weight: 86 kg

DRUGS (2)
  1. VYVANSE [Suspect]
     Active Substance: LISDEXAMFETAMINE DIMESYLATE
     Indication: Attention deficit hyperactivity disorder
     Dosage: 40 MILLIGRAM, QD
     Route: 065
     Dates: start: 2023
  2. LISDEXAMFETAMINE DIMESYLATE [Suspect]
     Active Substance: LISDEXAMFETAMINE DIMESYLATE
     Indication: Attention deficit hyperactivity disorder
     Dosage: UNK
     Route: 065

REACTIONS (8)
  - Thinking abnormal [Unknown]
  - Gait disturbance [Unknown]
  - Tachyphrenia [Unknown]
  - Inability to afford medication [Unknown]
  - Insurance issue [Unknown]
  - Product availability issue [Unknown]
  - Blood pressure increased [Unknown]
  - Heart rate increased [Unknown]
